FAERS Safety Report 24770775 (Version 1)
Quarter: 2024Q4

REPORT INFORMATION
  Report Type: Spontaneous
  Country: GB (occurrence: GB)
  Receive Date: 20241224
  Receipt Date: 20241224
  Transmission Date: 20250114
  Serious: Yes (Hospitalization, Other)
  Sender: ACCORD
  Company Number: None

PATIENT
  Age: 84 Year
  Sex: Male

DRUGS (18)
  1. FUROSEMIDE [Suspect]
     Active Substance: FUROSEMIDE
     Indication: Product used for unknown indication
     Dosage: EVERY MORNING
  2. GLIMEPIRIDE [Suspect]
     Active Substance: GLIMEPIRIDE
     Indication: Product used for unknown indication
     Dosage: EVERY MORNING
  3. LERCANIDIPINE [Suspect]
     Active Substance: LERCANIDIPINE
     Indication: Product used for unknown indication
     Dosage: 10 MG TABLETS ONCE A DAY TEATIME PATIENT STATES HE REMOVES FROM B^PACK AS
  4. IRBESARTAN [Suspect]
     Active Substance: IRBESARTAN
     Indication: Product used for unknown indication
     Dosage: EVERY MORNING
  5. METFORMIN [Suspect]
     Active Substance: METFORMIN HYDROCHLORIDE
     Indication: Product used for unknown indication
     Dosage: TWICE A DAY
  6. LANSOPRAZOLE [Concomitant]
     Active Substance: LANSOPRAZOLE
     Dosage: TWICE A DAY
  7. CALCIUM\CHOLECALCIFEROL [Concomitant]
     Active Substance: CALCIUM\CHOLECALCIFEROL
     Dosage: TWICE A DAY
  8. ALENDRONIC ACID [Concomitant]
     Active Substance: ALENDRONIC ACID
     Dosage: STRENGTH: 70 MG, ONCE A WEEK ON THURSDAYS
  9. ATORVASTATIN [Concomitant]
     Active Substance: ATORVASTATIN
     Dosage: EVERY NIGHT
  10. EDOXABAN [Concomitant]
     Active Substance: EDOXABAN
     Dosage: EVERY MORNING
  11. FERROUS FUMARATE [Concomitant]
     Active Substance: FERROUS FUMARATE
     Dosage: STRENGTH: 210 MG, ONE TO BE TAKEN DAILY
  12. GLYCERIN [Concomitant]
     Active Substance: GLYCERIN
     Dosage: STRENGTH: 4 G, ONE TO BE INSERTED AS DIRECTED
  13. SERTRALINE [Concomitant]
     Active Substance: SERTRALINE HYDROCHLORIDE
     Dosage: ONE TO BE TAKEN EACH DAY 28 TABLET - PT STATES NEVER HEARD OF IT, NOT TAKING
  14. GABAPENTIN [Concomitant]
     Active Substance: GABAPENTIN
     Dosage: STRENGTH: 300 MG, THREE TIMES A DAY
  15. POLYETHYLENE GLYCOL 3350\POTASSIUM CHLORIDE\SODIUM BICARBONATE\SODIUM [Concomitant]
     Active Substance: POLYETHYLENE GLYCOL 3350\POTASSIUM CHLORIDE\SODIUM BICARBONATE\SODIUM CHLORIDE
     Indication: Constipation
     Dosage: TAKE ONE TWICE A DAY FOR CONSTIPATION  DOESN^T NEED CURRENTLY BUT WAS USING PRE-ADMISSION
  16. OXYCODONE HYDROCHLORIDE [Concomitant]
     Active Substance: OXYCODONE HYDROCHLORIDE
     Indication: Pain
     Dosage: STRENGTH: 5 MG / 5 ML, 2.5 ML TO BE TAKEN EVERY 6 HOURS WHEN REQUIRED FOR PAIN
  17. POTASSIUM BICARBONATE\SODIUM ALGINATE [Concomitant]
     Active Substance: POTASSIUM BICARBONATE\SODIUM ALGINATE
     Dosage: 5-10 MLS UPTO FOUR TIMES A DAY- AS NEEDED RARELY NEEDS
  18. COCODAMOL [Concomitant]
     Active Substance: ACETAMINOPHEN\CODEINE PHOSPHATE
     Dosage: STRENGTH: 30MG/500MG CAPLETS, 2 FOUR TIMES A DAY

REACTIONS (1)
  - Acute kidney injury [Recovered/Resolved]
